FAERS Safety Report 18124811 (Version 1)
Quarter: 2020Q3

REPORT INFORMATION
  Report Type: Spontaneous
  Country: US (occurrence: US)
  Receive Date: 20200807
  Receipt Date: 20200807
  Transmission Date: 20201103
  Serious: No
  Sender: FDA-Public Use
  Company Number: US-PFIZER INC-2020294691

PATIENT
  Age: 20 Year
  Sex: Female
  Weight: 66.22 kg

DRUGS (1)
  1. DEPO?PROVERA [Suspect]
     Active Substance: MEDROXYPROGESTERONE ACETATE
     Indication: CONTRACEPTION
     Dosage: 150MG/ML EVERY 3 MONTHS
     Dates: start: 201809

REACTIONS (3)
  - Product storage error [Unknown]
  - Nausea [Unknown]
  - Poor quality product administered [Unknown]

NARRATIVE: CASE EVENT DATE: 20200709
